FAERS Safety Report 10739901 (Version 1)
Quarter: 2015Q1

REPORT INFORMATION
  Report Type: Spontaneous
  Country: US (occurrence: US)
  Receive Date: 20150127
  Receipt Date: 20150127
  Transmission Date: 20150721
  Serious: No
  Sender: FDA-Public Use
  Company Number: US-LEO PHARMA-231234

PATIENT
  Age: 52 Year
  Sex: Male

DRUGS (1)
  1. PICATO [Suspect]
     Active Substance: INGENOL MEBUTATE
     Indication: ACTINIC KERATOSIS
     Route: 061
     Dates: start: 20141113, end: 20141115

REACTIONS (5)
  - Application site scab [Recovered/Resolved]
  - Drug administered at inappropriate site [Unknown]
  - Application site vesicles [Recovered/Resolved]
  - Application site exfoliation [Not Recovered/Not Resolved]
  - Application site swelling [Recovered/Resolved]

NARRATIVE: CASE EVENT DATE: 20141114
